FAERS Safety Report 8489587-X (Version None)
Quarter: 2012Q2

REPORT INFORMATION
  Report Type: 
  Country: None (occurrence: None)
  Receive Date: 20120626
  Receipt Date: 20120611
  Transmission Date: 20120825
  Serious: Yes (Hospitalization)
  Sender: FDA-Public Use
  Company Number: ENTC2012-0237

PATIENT
  Age: 47 Year
  Sex: Female

DRUGS (15)
  1. MODOPAR (LEVODOPA) [Suspect]
     Indication: PARKINSON'S DISEASE
     Dosage: 125 MG AS NEEDED
     Dates: start: 20120330
  2. MODOPAR (LEVODOPA) [Suspect]
     Indication: PARKINSON'S DISEASE
     Dosage: 125 MG AS NEEDED
     Dates: start: 20090101, end: 20120326
  3. AZILECT [Concomitant]
  4. CLONAZEPAM [Concomitant]
  5. STALEVO 50 [Suspect]
     Indication: PARKINSON'S DISEASE
     Dosage: 50/12.5/200 MG, 4 TIMES DAILY:INCREASED TO 100/12.5/200 MG 4 TIMES DAILY:75/12.5/200 MG, 4 DF DAILY
     Route: 048
     Dates: start: 20090101, end: 20120329
  6. STALEVO 50 [Suspect]
     Indication: PARKINSON'S DISEASE
     Dosage: 50/12.5/200 MG, 4 TIMES DAILY:INCREASED TO 100/12.5/200 MG 4 TIMES DAILY:75/12.5/200 MG, 4 DF DAILY
     Route: 048
     Dates: start: 20120330, end: 20120401
  7. STALEVO 50 [Suspect]
     Indication: PARKINSON'S DISEASE
     Dosage: 50/12.5/200 MG, 4 TIMES DAILY:INCREASED TO 100/12.5/200 MG 4 TIMES DAILY:75/12.5/200 MG, 4 DF DAILY
     Route: 048
     Dates: start: 20120401
  8. REQUIP [Suspect]
     Indication: PARKINSON'S DISEASE
     Dosage: VARIABLE DOSAGE BETWEEN 16 MG AND 20 MG:DOSE DECREASED:20 MG: 24 MG DAILY: 4 MG (2 MG, 2 IN 1 D)
     Dates: start: 20120228
  9. REQUIP [Suspect]
     Indication: PARKINSON'S DISEASE
     Dosage: VARIABLE DOSAGE BETWEEN 16 MG AND 20 MG:DOSE DECREASED:20 MG: 24 MG DAILY: 4 MG (2 MG, 2 IN 1 D)
     Dates: start: 20070601, end: 20070101
  10. REQUIP [Suspect]
     Indication: PARKINSON'S DISEASE
     Dosage: VARIABLE DOSAGE BETWEEN 16 MG AND 20 MG:DOSE DECREASED:20 MG: 24 MG DAILY: 4 MG (2 MG, 2 IN 1 D)
     Dates: start: 20080501
  11. REQUIP [Suspect]
     Indication: PARKINSON'S DISEASE
     Dosage: VARIABLE DOSAGE BETWEEN 16 MG AND 20 MG:DOSE DECREASED:20 MG: 24 MG DAILY: 4 MG (2 MG, 2 IN 1 D)
     Dates: start: 20120202
  12. REQUIP [Suspect]
     Indication: PARKINSON'S DISEASE
     Dosage: VARIABLE DOSAGE BETWEEN 16 MG AND 20 MG:DOSE DECREASED:20 MG: 24 MG DAILY: 4 MG (2 MG, 2 IN 1 D)
     Dates: start: 20120307, end: 20120326
  13. MORPHINE SULFATE [Suspect]
     Indication: MALAISE
     Dosage: 1 DF; STRENGTH: 5 MG
     Route: 048
  14. MORPHINE SULFATE [Suspect]
     Indication: PAIN
     Dosage: 1 DF; STRENGTH: 5 MG
     Route: 048
  15. LYRICA [Suspect]
     Indication: PAIN
     Dosage: 50 MG
     Dates: start: 20120307, end: 20120326

REACTIONS (5)
  - LIBIDO INCREASED [None]
  - PERSECUTORY DELUSION [None]
  - PARANOIA [None]
  - DELIRIUM [None]
  - CONFUSIONAL STATE [None]
